FAERS Safety Report 6601577-8 (Version None)
Quarter: 2010Q1

REPORT INFORMATION
  Report Type: 
  Country: None (occurrence: None)
  Receive Date: 20100225
  Receipt Date: 20091221
  Transmission Date: 20100710
  Serious: No
  Sender: FDA-Public Use
  Company Number: US-KINGPHARMUSA00001-K200901592

PATIENT
  Age: 75 Year
  Sex: Female

DRUGS (1)
  1. FLECTOR [Suspect]
     Dosage: 1 PATCH, BID
     Route: 061
     Dates: start: 20091210, end: 20091201

REACTIONS (3)
  - CONSTIPATION [None]
  - DIARRHOEA [None]
  - VOMITING [None]
